FAERS Safety Report 6259449-7 (Version None)
Quarter: 2009Q3

REPORT INFORMATION
  Report Type: 
  Country: None (occurrence: None)
  Receive Date: 20090708
  Receipt Date: 20090630
  Transmission Date: 20100115
  Serious: Yes (Hospitalization)
  Sender: FDA-Public Use
  Company Number: US-BIOGENIDEC-2009BI013303

PATIENT
  Age: 45 Year
  Sex: Female
  Weight: 59 kg

DRUGS (3)
  1. TYSABRI [Suspect]
     Indication: CROHN'S DISEASE
     Route: 042
     Dates: start: 20090323, end: 20090401
  2. PREDNISONE TAB [Concomitant]
  3. NARCOTICS [Concomitant]

REACTIONS (4)
  - ABDOMINAL PAIN [None]
  - FISTULA [None]
  - PYREXIA [None]
  - WHITE BLOOD CELL COUNT INCREASED [None]
